FAERS Safety Report 10549633 (Version 3)
Quarter: 2014Q4

REPORT INFORMATION
  Report Type: Spontaneous
  Country: JP (occurrence: JP)
  Receive Date: 20141028
  Receipt Date: 20141117
  Transmission Date: 20150529
  Serious: Yes (Life-Threatening)
  Sender: FDA-Public Use
  Company Number: JP-GE HEALTHCARE MEDICAL DIAGNOSTICS-OMPQ-PR-1410S-1280

PATIENT
  Age: 73 Year
  Sex: Male
  Weight: 52 kg

DRUGS (10)
  1. FRANDOL [Concomitant]
     Active Substance: ISOSORBIDE DINITRATE
     Dates: start: 20141001
  2. ZYLORIC [Concomitant]
     Active Substance: ALLOPURINOL
     Dates: start: 20141001
  3. OMNIPAQUE [Suspect]
     Active Substance: IOHEXOL
     Indication: PRODUCT USED FOR UNKNOWN INDICATION
     Route: 042
     Dates: start: 20141006, end: 20141006
  4. ASPENON [Concomitant]
     Active Substance: APRINDINE HYDROCHLORIDE
     Dates: start: 20141001
  5. AZILVA [Concomitant]
     Active Substance: AZILSARTAN KAMEDOXOMIL
     Dates: start: 20141001
  6. OMNIPAQUE [Suspect]
     Active Substance: IOHEXOL
     Indication: DIAGNOSTIC PROCEDURE
  7. REGPARA [Concomitant]
     Active Substance: CINACALCET HYDROCHLORIDE
     Dates: start: 20141001
  8. LOTRIGA [Concomitant]
     Active Substance: OMEGA-3-ACID ETHYL ESTERS
     Dates: start: 20141001
  9. LANSOPRAZOLE. [Concomitant]
     Active Substance: LANSOPRAZOLE
     Dates: start: 20141001
  10. ROHYPNOL [Concomitant]
     Active Substance: FLUNITRAZEPAM
     Dates: start: 20141001

REACTIONS (1)
  - Anaphylactic shock [Recovered/Resolved]

NARRATIVE: CASE EVENT DATE: 20141006
